FAERS Safety Report 17894243 (Version 2)
Quarter: 2020Q2

REPORT INFORMATION
  Report Type: Spontaneous
  Country: NL (occurrence: NL)
  Receive Date: 20200615
  Receipt Date: 20200622
  Transmission Date: 20200714
  Serious: Yes (Other)
  Sender: FDA-Public Use
  Company Number: NL-TEVA-2020-NL-1240625

PATIENT
  Age: 36 Year
  Sex: Female
  Weight: 83 kg

DRUGS (10)
  1. MONTELUKAST [Concomitant]
     Active Substance: MONTELUKAST SODIUM
     Indication: ASTHMA
     Route: 048
  2. SPIRIVA RESPIMAT [Concomitant]
     Active Substance: TIOTROPIUM BROMIDE
     Indication: ASTHMA
     Dosage: 1 DOSE DAILY 2 INHALATIONS
     Route: 055
  3. ALVESCO DA [Concomitant]
     Indication: ASTHMA
     Dosage: 2 DOSES DAILY 320MCG
     Route: 055
  4. FLUTICASONE  50MCG [Concomitant]
     Active Substance: FLUTICASONE
     Indication: RHINITIS ALLERGIC
     Dosage: 2 DOSES DAILY 1 PUFF EACH NOSTRIL
     Route: 065
  5. PREDNISONE. [Concomitant]
     Active Substance: PREDNISONE
     Indication: ASTHMA
     Route: 048
  6. PANTOPRAZOLE 20MG MSR [Concomitant]
     Indication: GASTROOESOPHAGEAL REFLUX PROPHYLAXIS
     Dosage: 40 MILLIGRAM DAILY;
     Route: 065
  7. CINQAERO 10 MG/ML [Suspect]
     Active Substance: RESLIZUMAB
     Indication: ASTHMA
     Dosage: LAST INJECTION WAS ON 08-MAY-2020
     Route: 042
     Dates: start: 20180502, end: 20200508
  8. FOSTER 100/6 MCG [Concomitant]
     Indication: ASTHMA
     Dosage: 3 DOSES DAILY 2 INHALATIONS
     Route: 055
  9. SALBUTAMOL DA 100 MCG [Concomitant]
     Indication: ASTHMA
     Dosage: 6 DOSES DAILY, WHEN NECESSARY
     Route: 055
  10. IPRATROPIUM DA 20MCG [Concomitant]
     Indication: ASTHMA
     Dosage: 4 DOSES DAILY 2 INHALATIONS, WHEN NECESSARY,
     Route: 055

REACTIONS (3)
  - Abortion spontaneous [Unknown]
  - Maternal exposure during pregnancy [Unknown]
  - Asthma [Unknown]

NARRATIVE: CASE EVENT DATE: 2020
